FAERS Safety Report 23570153 (Version 3)
Quarter: 2024Q2

REPORT INFORMATION
  Report Type: Spontaneous
  Country: AT (occurrence: AT)
  Receive Date: 20240227
  Receipt Date: 20240616
  Transmission Date: 20240716
  Serious: Yes (Hospitalization)
  Sender: FDA-Public Use
  Company Number: AT-ROCHE-2214729

PATIENT
  Age: 40 Year
  Sex: Female
  Weight: 60 kg

DRUGS (57)
  1. DENOSUMAB [Suspect]
     Active Substance: DENOSUMAB
     Indication: HER2 positive breast cancer
     Dosage: 120 MG
     Route: 058
     Dates: start: 20181129
  2. DENOSUMAB [Suspect]
     Active Substance: DENOSUMAB
     Dosage: 120 MG
     Route: 058
     Dates: start: 20190319, end: 201904
  3. DENOSUMAB [Suspect]
     Active Substance: DENOSUMAB
     Indication: Dental fistula
     Dosage: MOST RECENT DOSE OF DENOSUMAB 19/MAR/2019, 29/NOV/2018
     Route: 058
     Dates: start: 201611, end: 20181129
  4. HERCEPTIN [Suspect]
     Active Substance: TRASTUZUMAB
     Dosage: 600 MG
     Route: 058
     Dates: start: 20190509, end: 20191227
  5. HERCEPTIN [Suspect]
     Active Substance: TRASTUZUMAB
     Indication: HER2 positive breast cancer
     Dosage: MOST RECENT DOSE ON 27/DEC/2019 OR 3/MAY/2018
     Route: 058
     Dates: start: 20180503, end: 20190502
  6. HERCEPTIN [Suspect]
     Active Substance: TRASTUZUMAB
     Dosage: UNK
     Route: 065
     Dates: start: 20191227
  7. LETROZOLE [Suspect]
     Active Substance: LETROZOLE
     Indication: HER2 positive breast cancer
     Dosage: 2.5 MILLIGRAM, QD
     Route: 048
     Dates: start: 20200225
  8. LEUPROLIDE ACETATE [Suspect]
     Active Substance: ISOPROPYL ALCOHOL\LEUPROLIDE ACETATE
     Indication: HER2 positive breast cancer
     Dosage: 11.25 MG, Q3MO
     Route: 058
     Dates: start: 201804
  9. LEUPROLIDE ACETATE [Suspect]
     Active Substance: ISOPROPYL ALCOHOL\LEUPROLIDE ACETATE
     Dosage: 11.25 MG, Q3MO
     Route: 059
     Dates: start: 201804, end: 20200225
  10. PERJETA [Suspect]
     Active Substance: PERTUZUMAB
     Dosage: 420 MG, TIW
     Route: 058
     Dates: start: 20181213, end: 20190502
  11. PERJETA [Suspect]
     Active Substance: PERTUZUMAB
     Dosage: 420 MG, TIW
     Route: 058
     Dates: start: 20190509, end: 20191227
  12. PERJETA [Suspect]
     Active Substance: PERTUZUMAB
     Indication: HER2 positive breast cancer
     Dosage: MOST RECENT DOSE ON 27/DEC/2019
     Route: 041
     Dates: start: 201811, end: 201811
  13. PERJETA [Suspect]
     Active Substance: PERTUZUMAB
     Dosage: 840 MG, TIW (MOST RECENT DOSE PRIOR TO THE EVENT: 22/NOV/2018)
     Route: 041
     Dates: start: 20181122, end: 20181122
  14. PERTUZUMAB [Suspect]
     Active Substance: PERTUZUMAB
     Indication: Product used for unknown indication
     Dosage: MOST RECENT DOSE ON 27/DEC/2019
     Route: 058
     Dates: start: 20190509, end: 20191227
  15. TRASTUZUMAB [Suspect]
     Active Substance: TRASTUZUMAB
     Indication: HER2 positive breast cancer
     Dosage: 600 MG, TIW (MOST RECENT DOSE ON 27/DEC/2019)
     Route: 041
     Dates: start: 20180503
  16. ADO-TRASTUZUMAB EMTANSINE [Suspect]
     Active Substance: ADO-TRASTUZUMAB EMTANSINE
     Indication: HER2 positive breast cancer
     Dosage: 3.5 MG/KG, Q4W ROUTE OF ADMIN (FREE TEXT): INTRAVENOUS DRIP
     Route: 065
     Dates: start: 20161114
  17. ADO-TRASTUZUMAB EMTANSINE [Suspect]
     Active Substance: ADO-TRASTUZUMAB EMTANSINE
     Dosage: 3.6 MG/KG, Q4W
     Route: 042
     Dates: start: 20170522, end: 20170522
  18. ADO-TRASTUZUMAB EMTANSINE [Suspect]
     Active Substance: ADO-TRASTUZUMAB EMTANSINE
     Dosage: 3.6 MILLIGRAM/KILOGRAM, Q4WEEKS
     Route: 058
     Dates: start: 20170821, end: 20171120
  19. ADO-TRASTUZUMAB EMTANSINE [Suspect]
     Active Substance: ADO-TRASTUZUMAB EMTANSINE
     Dosage: 600 MG, TIW
     Route: 041
     Dates: start: 20180305
  20. ADO-TRASTUZUMAB EMTANSINE [Suspect]
     Active Substance: ADO-TRASTUZUMAB EMTANSINE
     Dosage: 3.6 MILLIGRAM/KILOGRAM, Q4WEEKS
     Route: 041
     Dates: start: 20161114, end: 20170424
  21. ADO-TRASTUZUMAB EMTANSINE [Suspect]
     Active Substance: ADO-TRASTUZUMAB EMTANSINE
     Dosage: LAST ADMIN 2017
     Route: 041
     Dates: start: 20170522
  22. ADO-TRASTUZUMAB EMTANSINE [Suspect]
     Active Substance: ADO-TRASTUZUMAB EMTANSINE
     Dosage: UNK
     Route: 041
     Dates: start: 20170821
  23. TRENANTONE [Suspect]
     Active Substance: LEUPROLIDE ACETATE
     Indication: HER2 positive breast cancer
     Dosage: MOST RECENT DOSE ADMINISTERED ON: 25/FEB/2020
     Route: 058
     Dates: start: 201804
  24. AMOXICILLIN [Concomitant]
     Active Substance: AMOXICILLIN
     Indication: Chills
     Dosage: ONGOING = NOT CHECKED
     Route: 065
     Dates: start: 20190415, end: 20190415
  25. AMOXICILLIN [Concomitant]
     Active Substance: AMOXICILLIN
     Dosage: ONGOING = NOT CHECKED
     Route: 065
     Dates: start: 20190415, end: 20190415
  26. EMEND [Concomitant]
     Active Substance: APREPITANT
     Indication: Product used for unknown indication
     Dosage: 80 MG (ONGOING = CHECKED)
     Route: 065
     Dates: start: 20161115, end: 20200417
  27. EMEND [Concomitant]
     Active Substance: APREPITANT
     Indication: Product used for unknown indication
     Dosage: UNK
     Route: 065
     Dates: start: 20161115, end: 20200417
  28. DEXAMETHASONE [Concomitant]
     Active Substance: DEXAMETHASONE
     Dosage: 4 MG, QD
     Route: 065
     Dates: start: 20200303, end: 20200309
  29. DEXAMETHASONE [Concomitant]
     Active Substance: DEXAMETHASONE
     Dosage: 40 MG, QD
     Route: 065
     Dates: start: 20200229, end: 20200302
  30. DEXAMETHASONE [Concomitant]
     Active Substance: DEXAMETHASONE
     Indication: Product used for unknown indication
     Dosage: 8 MG, QD
     Route: 065
     Dates: start: 20170530, end: 20170530
  31. DEXAMETHASONE [Concomitant]
     Active Substance: DEXAMETHASONE
     Dosage: 8 MG, Q12H
     Route: 065
     Dates: start: 20170330, end: 20200417
  32. DEXAMETHASONE [Concomitant]
     Active Substance: DEXAMETHASONE
     Indication: Product used for unknown indication
     Dosage: UNK
     Route: 065
     Dates: start: 20170330, end: 20200417
  33. DEXAMETHASONE [Concomitant]
     Active Substance: DEXAMETHASONE
     Dosage: UNK
     Route: 065
     Dates: start: 20170330
  34. FRAGMIN [Concomitant]
     Active Substance: DALTEPARIN SODIUM
     Indication: Product used for unknown indication
     Dosage: UNK
     Route: 065
     Dates: start: 20200228, end: 20200311
  35. LYRICA [Concomitant]
     Active Substance: PREGABALIN
     Indication: Product used for unknown indication
     Dosage: 75 MG
     Route: 065
     Dates: start: 20200225, end: 20200417
  36. ACETAMINOPHEN [Concomitant]
     Active Substance: ACETAMINOPHEN
     Indication: Metastases to central nervous system
     Dosage: 500 MG
     Route: 065
     Dates: start: 20170609, end: 20200417
  37. ACETAMINOPHEN [Concomitant]
     Active Substance: ACETAMINOPHEN
     Indication: Metastases to central nervous system
     Dosage: UNK
     Route: 065
     Dates: start: 20170609, end: 20200417
  38. ACETAMINOPHEN [Concomitant]
     Active Substance: ACETAMINOPHEN
     Indication: Metastases to central nervous system
  39. Miranax [Concomitant]
     Indication: Product used for unknown indication
     Dosage: 550 MG
     Route: 065
     Dates: start: 20161115, end: 20200417
  40. Miranax [Concomitant]
     Indication: Product used for unknown indication
     Dosage: UNK
     Route: 065
     Dates: start: 20161115, end: 20200417
  41. POLYETHYLENE GLYCOL 3350\POTASSIUM CHLORIDE\SODIUM BICARBONATE\SODIUM [Concomitant]
     Active Substance: POLYETHYLENE GLYCOL 3350\POTASSIUM CHLORIDE\SODIUM BICARBONATE\SODIUM CHLORIDE
     Indication: Product used for unknown indication
     Dosage: 13.8 G, Q12H
     Route: 065
     Dates: start: 20200306, end: 20200311
  42. MORPHINE [Concomitant]
     Active Substance: MORPHINE
     Indication: Product used for unknown indication
     Dosage: 10 MG, QD
     Route: 065
     Dates: start: 20170530, end: 20170530
  43. MORPHINE [Concomitant]
     Active Substance: MORPHINE
     Indication: Product used for unknown indication
     Dosage: 5 MG
     Route: 065
     Dates: start: 20200225, end: 20200417
  44. ACETAMINOPHEN [Concomitant]
     Active Substance: ACETAMINOPHEN
     Indication: Product used for unknown indication
     Dosage: 1000 MG, QD
     Route: 065
     Dates: start: 20200228, end: 20200228
  45. MEFENAMIC ACID [Concomitant]
     Active Substance: MEFENAMIC ACID
     Dosage: 500 MG
     Route: 065
     Dates: start: 20170315, end: 20200417
  46. MEFENAMIC ACID [Concomitant]
     Active Substance: MEFENAMIC ACID
     Indication: Dental fistula
     Dosage: UNK
     Route: 065
     Dates: start: 20170315, end: 20200417
  47. MEFENAMIC ACID [Concomitant]
     Active Substance: MEFENAMIC ACID
     Dosage: UNK
     Route: 065
     Dates: start: 20181113, end: 20181120
  48. MEFENAMIC ACID [Concomitant]
     Active Substance: MEFENAMIC ACID
     Dosage: 500 MG
     Route: 065
     Dates: start: 20181113, end: 20181120
  49. XGEVA [Concomitant]
     Active Substance: DENOSUMAB
     Dosage: 120 MG, QMO
     Route: 058
     Dates: start: 20190319, end: 201904
  50. XGEVA [Concomitant]
     Active Substance: DENOSUMAB
     Indication: HER2 positive breast cancer
     Dosage: 120 MG, QMO (MOST RECENT DOSE OF DENOSUMAB 19/MAR/2019, 29/NOV/2018)
     Route: 058
     Dates: start: 201611, end: 201904
  51. XGEVA [Concomitant]
     Active Substance: DENOSUMAB
     Dosage: UNK
     Route: 058
     Dates: start: 20181129
  52. XGEVA [Concomitant]
     Active Substance: DENOSUMAB
     Dosage: UNK
     Route: 065
  53. ZOFRAN [Concomitant]
     Active Substance: ONDANSETRON HYDROCHLORIDE
     Indication: Product used for unknown indication
     Dosage: 4 MG
     Route: 065
     Dates: start: 20200228, end: 20200228
  54. ZOFRAN [Concomitant]
     Active Substance: ONDANSETRON HYDROCHLORIDE
     Dosage: UNK
     Route: 065
     Dates: start: 20161115, end: 20200417
  55. ZOFRAN [Concomitant]
     Active Substance: ONDANSETRON HYDROCHLORIDE
     Indication: Product used for unknown indication
     Dosage: UNK
     Route: 065
     Dates: start: 20161115, end: 20200417
  56. ZOLPIDEM [Concomitant]
     Active Substance: ZOLPIDEM TARTRATE
     Indication: Product used for unknown indication
     Dosage: 10 MG
     Route: 065
     Dates: start: 20200228, end: 20200417
  57. ZOLPIDEM [Concomitant]
     Active Substance: ZOLPIDEM TARTRATE
     Indication: Product used for unknown indication

REACTIONS (10)
  - Night sweats [Recovered/Resolved]
  - Vision blurred [Recovered/Resolved]
  - Spinal pain [Recovered/Resolved]
  - Dental fistula [Recovered/Resolved]
  - Chills [Recovered/Resolved]
  - Spinal pain [Recovered/Resolved]
  - Dental fistula [Recovered/Resolved]
  - Nasopharyngitis [Recovered/Resolved]
  - Spinal pain [Not Recovered/Not Resolved]
  - Dental fistula [Recovered/Resolved]
